FAERS Safety Report 14018392 (Version 1)
Quarter: 2017Q3

REPORT INFORMATION
  Report Type: Report from Study
  Country: None (occurrence: CA)
  Receive Date: 20170928
  Receipt Date: 20170928
  Transmission Date: 20171128
  Serious: Yes (Other)
  Sender: FDA-Public Use
  Company Number: CA-ABBVIE-17K-028-2111092-00

PATIENT
  Sex: Male

DRUGS (2)
  1. HUMIRA [Suspect]
     Active Substance: ADALIMUMAB
     Indication: CROHN^S DISEASE
     Route: 058
     Dates: start: 20150707, end: 2017
  2. HUMIRA [Suspect]
     Active Substance: ADALIMUMAB
     Route: 058
     Dates: start: 2017

REACTIONS (3)
  - Diarrhoea [Not Recovered/Not Resolved]
  - Enterocolitis [Not Recovered/Not Resolved]
  - Small intestinal obstruction [Not Recovered/Not Resolved]

NARRATIVE: CASE EVENT DATE: 2017
